FAERS Safety Report 19495736 (Version 1)
Quarter: 2021Q3

REPORT INFORMATION
  Report Type: Spontaneous
  Country: US (occurrence: US)
  Receive Date: 20210702
  Receipt Date: 20210702
  Transmission Date: 20211014
  Serious: Yes (Hospitalization)
  Sender: FDA-Public Use
  Company Number: None

PATIENT
  Age: 4 Day
  Sex: Male
  Weight: 3.15 kg

DRUGS (1)
  1. TRAMADOL. [Suspect]
     Active Substance: TRAMADOL
     Indication: PROCEDURAL PAIN
     Route: 048
     Dates: start: 20180526, end: 20180528

REACTIONS (4)
  - Exposure via breast milk [None]
  - Hypotonia [None]
  - Feeling abnormal [None]
  - Delirium [None]

NARRATIVE: CASE EVENT DATE: 20180527
